FAERS Safety Report 13302074 (Version 1)
Quarter: 2017Q1

REPORT INFORMATION
  Report Type: Spontaneous
  Country: US (occurrence: US)
  Receive Date: 20170307
  Receipt Date: 20170307
  Transmission Date: 20170428
  Serious: No
  Sender: FDA-Public Use
  Company Number: None

PATIENT
  Age: 13 Year
  Sex: Female
  Weight: 50.5 kg

DRUGS (6)
  1. HYDROCORTISONE. [Suspect]
     Active Substance: HYDROCORTISONE
     Dates: end: 20161102
  2. METHOTREXATE. [Suspect]
     Active Substance: METHOTREXATE
     Dates: end: 20161109
  3. CYTARABINE. [Suspect]
     Active Substance: CYTARABINE
     Dates: end: 20161102
  4. MERCAPTOPURINE. [Suspect]
     Active Substance: MERCAPTOPURINE
     Dates: end: 20161117
  5. VINCRISTINE SULFATE. [Suspect]
     Active Substance: VINCRISTINE SULFATE
     Dates: end: 20161102
  6. PREDNISONE. [Suspect]
     Active Substance: PREDNISONE
     Dates: end: 20161106

REACTIONS (2)
  - Blood bilirubin increased [None]
  - Bilirubin conjugated increased [None]

NARRATIVE: CASE EVENT DATE: 20161118
